FAERS Safety Report 10717934 (Version 1)
Quarter: 2015Q1

REPORT INFORMATION
  Report Type: Report from Study
  Country: NL (occurrence: NL)
  Receive Date: 20150116
  Receipt Date: 20150116
  Transmission Date: 20150721
  Serious: Yes (Life-Threatening, Other)
  Sender: FDA-Public Use
  Company Number: NL-ABBVIE-15P-114-1333871-00

PATIENT
  Sex: Male
  Weight: 96 kg

DRUGS (1)
  1. LUCRIN [Suspect]
     Active Substance: LEUPROLIDE ACETATE
     Indication: PROSTATE CANCER
     Route: 058
     Dates: start: 20140724, end: 20140724

REACTIONS (2)
  - Terminal state [Not Recovered/Not Resolved]
  - Prostate cancer [Not Recovered/Not Resolved]
